FAERS Safety Report 12226983 (Version 1)
Quarter: 2016Q1

REPORT INFORMATION
  Report Type: Report from Study
  Country: FR (occurrence: FR)
  Receive Date: 20160331
  Receipt Date: 20160331
  Transmission Date: 20160526
  Serious: Yes (Death)
  Sender: FDA-Public Use
  Company Number: FR-JNJFOC-20150100384

PATIENT
  Age: 8 Decade
  Sex: Female
  Weight: 56 kg

DRUGS (18)
  1. GLICLAZIDE [Concomitant]
     Active Substance: GLICLAZIDE
     Dosage: 2 DOSAGE FORM IN THE MORNING AND ONE DOSAGE FORM AT NOON
     Route: 065
  2. VALSARTAN. [Concomitant]
     Active Substance: VALSARTAN
     Dosage: ONE DOSAGE FORM
     Route: 065
  3. ISOPTINE [Concomitant]
     Active Substance: VERAPAMIL HYDROCHLORIDE
     Route: 065
  4. MOVICOL [Concomitant]
     Active Substance: POLYETHYLENE GLYCOL 3350\POTASSIUM CHLORIDE\SODIUM BICARBONATE\SODIUM CHLORIDE
     Dosage: TWO DOSAGE FORM IN THE MORNING
     Route: 065
  5. LASILIX [Concomitant]
     Active Substance: FUROSEMIDE
     Dosage: ONE DOASGE FORM
     Route: 065
  6. CRESTOR [Concomitant]
     Active Substance: ROSUVASTATIN CALCIUM
     Dosage: ONE DOSAGE FORM
     Route: 065
  7. VALSARTAN. [Concomitant]
     Active Substance: VALSARTAN
     Route: 065
  8. DOLIPRANE [Concomitant]
     Active Substance: ACETAMINOPHEN
     Dosage: TWO DOSAGE FORM IN THE MORNING, AT NOON AND IN THE EVENING
     Route: 048
  9. CERAT DE GALIEN [Concomitant]
     Dosage: 1 APPLICATION
     Route: 065
  10. HYPERIUM [Concomitant]
     Active Substance: RILMENIDINE PHOSPHATE
     Dosage: ONE DOSAGE FORM
     Route: 065
  11. RIFINAH [Concomitant]
     Active Substance: ISONIAZID\RIFAMPIN
     Dosage: TWO DOSAGE FORM IN THE MORNING
     Route: 048
     Dates: start: 20140119, end: 20140723
  12. KARDEGIC [Concomitant]
     Active Substance: ASPIRIN LYSINE
     Dosage: ONE DOSAGE FORM
     Route: 065
  13. DERMOVAL [Concomitant]
     Active Substance: CLOBETASOL
     Dosage: 1 APPLICATION
     Route: 065
     Dates: end: 20140723
  14. REMICADE [Suspect]
     Active Substance: INFLIXIMAB
     Indication: PSORIASIS
     Route: 042
     Dates: start: 20140205
  15. REMICADE [Suspect]
     Active Substance: INFLIXIMAB
     Indication: PSORIASIS
     Route: 042
     Dates: start: 20140205, end: 20140528
  16. MOVICOL [Concomitant]
     Active Substance: POLYETHYLENE GLYCOL 3350\POTASSIUM CHLORIDE\SODIUM BICARBONATE\SODIUM CHLORIDE
     Route: 065
  17. REMICADE [Suspect]
     Active Substance: INFLIXIMAB
     Indication: PSORIASIS
     Route: 042
     Dates: start: 20140528
  18. ISOPTINE [Concomitant]
     Active Substance: VERAPAMIL HYDROCHLORIDE
     Dosage: ONE DOSAGE FORM
     Route: 065

REACTIONS (7)
  - Latent tuberculosis [Unknown]
  - Anaemia [Unknown]
  - Rectal haemorrhage [Recovered/Resolved]
  - Drug ineffective [Unknown]
  - Psoriasis [Not Recovered/Not Resolved]
  - Death [Fatal]
  - Infection [Unknown]
